FAERS Safety Report 22219009 (Version 1)
Quarter: 2023Q2

REPORT INFORMATION
  Report Type: Spontaneous
  Country: FR (occurrence: FR)
  Receive Date: 20230417
  Receipt Date: 20230417
  Transmission Date: 20230722
  Serious: Yes (Life-Threatening)
  Sender: FDA-Public Use
  Company Number: None

PATIENT
  Age: 32 Year
  Sex: Female
  Weight: 150 kg

DRUGS (16)
  1. CLINDAMYCIN HYDROCHLORIDE [Suspect]
     Active Substance: CLINDAMYCIN HYDROCHLORIDE
     Indication: Antibiotic prophylaxis
     Dosage: 900 MG, 1X/DAY
     Route: 042
     Dates: start: 20230210, end: 20230210
  2. LOVENOX [Suspect]
     Active Substance: ENOXAPARIN SODIUM
     Indication: Thrombosis prophylaxis
     Dosage: 6000 IU, 1X/DAY
     Route: 058
     Dates: start: 20230210, end: 20230210
  3. PROPOFOL [Suspect]
     Active Substance: PROPOFOL
     Indication: Induction of anaesthesia
     Dosage: 400 MG, SINGLE
     Route: 042
     Dates: start: 20230210, end: 20230210
  4. CARBETOCIN [Suspect]
     Active Substance: CARBETOCIN
     Indication: Haemorrhage prophylaxis
     Dosage: 100 UG, 1X/DAY
     Route: 042
     Dates: start: 20230210, end: 20230210
  5. TRAMADOL [Suspect]
     Active Substance: TRAMADOL
     Indication: Pain
     Dosage: 50 MG, 1X/DAY
     Route: 048
     Dates: start: 20230210, end: 20230210
  6. ROCURONIUM BROMIDE [Suspect]
     Active Substance: ROCURONIUM BROMIDE
     Indication: Induction of anaesthesia
     Dosage: 50 MG, SINGLE
     Route: 042
     Dates: start: 20230210, end: 20230210
  7. LEVOBUPIVACAINE HYDROCHLORIDE [Suspect]
     Active Substance: LEVOBUPIVACAINE HYDROCHLORIDE
     Indication: Nerve block
     Dosage: 1.25 MG/ML
     Route: 008
     Dates: start: 20230209, end: 20230210
  8. BRIDION [Suspect]
     Active Substance: SUGAMMADEX
     Indication: Neuromuscular blockade reversal
     Dosage: 600 MG, SINGLE
     Route: 042
     Dates: start: 20230210, end: 20230210
  9. SUCCINYLCHOLINE IODIDE [Suspect]
     Active Substance: SUCCINYLCHOLINE IODIDE
     Indication: Induction of anaesthesia
     Dosage: 100 MG, 1X/DAY
     Dates: start: 20230210, end: 20230210
  10. XYLOCAINE WITH EPINEPHRINE [Suspect]
     Active Substance: EPINEPHRINE BITARTRATE\LIDOCAINE HYDROCHLORIDE
     Indication: Nerve block
     Dosage: 400 MG, SINGLE (400MG/ 20ML)
     Route: 008
     Dates: start: 20230209, end: 20230210
  11. KETOPROFEN [Suspect]
     Active Substance: KETOPROFEN
     Indication: Pain
     Dosage: 100 MG, 1X/DAY
     Route: 042
     Dates: start: 20230210, end: 20230210
  12. NOREPINEPHRINE [Suspect]
     Active Substance: NOREPINEPHRINE
     Dosage: 37 UG
     Route: 042
     Dates: start: 20230210, end: 20230210
  13. SUFENTANIL [Suspect]
     Active Substance: SUFENTANIL
     Indication: Nerve block
     Dosage: UNK
     Route: 008
     Dates: start: 20230209, end: 20230210
  14. SUFENTANIL [Suspect]
     Active Substance: SUFENTANIL
     Indication: Induction of anaesthesia
     Dosage: 20 UG, SINGLE
     Route: 042
     Dates: start: 20230210, end: 20230210
  15. PHLOROGLUCINOL\1,3,5-TRIMETHOXYBENZENE [Concomitant]
     Active Substance: PHLOROGLUCINOL\1,3,5-TRIMETHOXYBENZENE
     Dosage: UNK
  16. ACETAMINOPHEN [Concomitant]
     Active Substance: ACETAMINOPHEN
     Dosage: UNK

REACTIONS (2)
  - Acute generalised exanthematous pustulosis [Recovering/Resolving]
  - Drug reaction with eosinophilia and systemic symptoms [Recovering/Resolving]

NARRATIVE: CASE EVENT DATE: 20230210
